FAERS Safety Report 9283581 (Version 2)
Quarter: 2013Q3

REPORT INFORMATION
  Report Type: Spontaneous
  Country: US (occurrence: US)
  Receive Date: 20130510
  Receipt Date: 20130827
  Transmission Date: 20140515
  Serious: Yes (Hospitalization, Disabling, Other)
  Sender: FDA-Public Use
  Company Number: US-BAYER-2013-058041

PATIENT
  Age: 45 Year
  Sex: Female
  Weight: 61.22 kg

DRUGS (16)
  1. YAZ [Suspect]
     Indication: MENSTRUAL DISORDER
     Dosage: UNK
     Dates: start: 201003, end: 201005
  2. YAZ [Suspect]
     Indication: MIGRAINE
  3. FLEXERIL [Concomitant]
     Dosage: 1-2 WEEKS BEFORE INJURY
  4. AUGMENTIN [Concomitant]
     Dosage: 1-2 WEEKS BEFORE INJURY
  5. LEVSIN [Concomitant]
  6. PRILOSEC [Concomitant]
  7. NAPROXEN [Concomitant]
  8. CORTISPORIN [Concomitant]
  9. CLARINEX [DESLORATADINE] [Concomitant]
  10. MULTIVITAMIN [Concomitant]
  11. L-LYSINE [Concomitant]
  12. ELAVIL [Concomitant]
  13. FEXOFENADINE [Concomitant]
  14. LEVAQUIN [Concomitant]
  15. AMOXICILLIN [Concomitant]
  16. IBUPROFEN [Concomitant]

REACTIONS (19)
  - Pulmonary embolism [Recovered/Resolved]
  - Thrombosis [None]
  - Pleurisy [Recovered/Resolved]
  - Asthma [None]
  - Respiratory disorder [None]
  - Injury [Recovered/Resolved]
  - Pain [Recovered/Resolved]
  - Emotional distress [None]
  - Anxiety [None]
  - Chest pain [Recovered/Resolved]
  - Haemoptysis [Recovered/Resolved]
  - Gait disturbance [None]
  - Fear [None]
  - Stress [None]
  - Mood swings [None]
  - Depression [None]
  - Irritable bowel syndrome [None]
  - Gastrooesophageal reflux disease [None]
  - Mental disorder [None]
